FAERS Safety Report 23986873 (Version 4)
Quarter: 2024Q4

REPORT INFORMATION
  Report Type: Spontaneous
  Country: GB (occurrence: GB)
  Receive Date: 20240618
  Receipt Date: 20241203
  Transmission Date: 20250115
  Serious: No
  Sender: MYLAN
  Company Number: GB-SANDOZ-SDZ2023GB055684

PATIENT
  Age: 46 Year
  Sex: Male

DRUGS (14)
  1. CLINDAMYCIN [Suspect]
     Active Substance: CLINDAMYCIN
     Indication: Hidradenitis
     Dosage: 300 MG, BID, CAPSULE, HARD
     Route: 048
  2. CLINDAMYCIN [Suspect]
     Active Substance: CLINDAMYCIN
     Dosage: 300 MILLIGRAM, CAPSULE, HARD  BID (TWICE A DAY)
     Route: 048
  3. CLINDAMYCIN [Suspect]
     Active Substance: CLINDAMYCIN
     Dosage: 300 MILLIGRAM, CAPSULE, HARD
     Route: 048
  4. CLINDAMYCIN [Suspect]
     Active Substance: CLINDAMYCIN
     Dosage: 600 MILLIGRAM, QD, 300 MG, BID
     Route: 048
  5. DOXYCYCLINE [Suspect]
     Active Substance: DOXYCYCLINE
     Indication: Hidradenitis
     Dosage: 200 MG, QD
     Route: 065
  6. DOXYCYCLINE [Suspect]
     Active Substance: DOXYCYCLINE
     Dosage: 200 MILLIGRAM
     Route: 065
  7. RIFAMPIN [Suspect]
     Active Substance: RIFAMPIN
     Indication: Hidradenitis
     Dosage: 300 MG, BID (600 MILLIGRAM, QD)
     Route: 048
  8. RIFAMPIN [Suspect]
     Active Substance: RIFAMPIN
     Dosage: 600 MILLIGRAM, QD (300 MG, BID)
     Route: 065
  9. RIFAMPIN [Suspect]
     Active Substance: RIFAMPIN
     Dosage: 300 MILLIGRAM, BID (TWICE A DAY)
     Route: 065
  10. ADALIMUMAB [Suspect]
     Active Substance: ADALIMUMAB
     Indication: Hidradenitis
     Dosage: 40 MILLIGRAM, QW
     Route: 065
  11. ADALIMUMAB [Suspect]
     Active Substance: ADALIMUMAB
     Dosage: 40 MILLIGRAM, QW
     Route: 065
  12. ADALIMUMAB [Suspect]
     Active Substance: ADALIMUMAB
     Indication: Product used for unknown indication
     Dosage: UNK
     Route: 065
  13. DOXYCYCLINE [Suspect]
     Active Substance: DOXYCYCLINE
     Indication: Hidradenitis
     Dosage: 200 MILLIGRAM, QD
     Route: 065
  14. CLINDAMYCIN HYDROCHLORIDE [Suspect]
     Active Substance: CLINDAMYCIN HYDROCHLORIDE
     Indication: Hidradenitis
     Dosage: 300 MILLIGRAM, BID
     Route: 048

REACTIONS (5)
  - Medication error [Unknown]
  - Hidradenitis [Unknown]
  - Condition aggravated [Unknown]
  - Off label use [Unknown]
  - Product use in unapproved indication [Unknown]
